FAERS Safety Report 16844824 (Version 2)
Quarter: 2019Q3

REPORT INFORMATION
  Report Type: Report from Study
  Country: None (occurrence: US)
  Receive Date: 20190924
  Receipt Date: 20190926
  Transmission Date: 20191005
  Serious: Yes (Hospitalization, Other)
  Sender: FDA-Public Use
  Company Number: US-ABBVIE-19K-163-2899807-00

PATIENT
  Age: 25 Year
  Sex: Female

DRUGS (3)
  1. HUMIRA [Suspect]
     Active Substance: ADALIMUMAB
     Indication: CROHN^S DISEASE
     Route: 058
  2. HUMIRA [Suspect]
     Active Substance: ADALIMUMAB
     Indication: CROHN^S DISEASE
     Route: 058
     Dates: start: 2019, end: 201908
  3. HUMIRA [Suspect]
     Active Substance: ADALIMUMAB
     Route: 058
     Dates: start: 20190925

REACTIONS (8)
  - Appendicitis perforated [Recovering/Resolving]
  - Injection site pain [Recovered/Resolved]
  - Sepsis [Recovering/Resolving]
  - Gastrointestinal infection [Recovering/Resolving]
  - Crohn^s disease [Recovering/Resolving]
  - Appendicitis [Recovering/Resolving]
  - Abortion spontaneous [Unknown]
  - Exposure during pregnancy [Unknown]

NARRATIVE: CASE EVENT DATE: 2019
